FAERS Safety Report 6933700-X (Version None)
Quarter: 2010Q3

REPORT INFORMATION
  Report Type: 
  Country: None (occurrence: None)
  Receive Date: 20100820
  Receipt Date: 20100816
  Transmission Date: 20110219
  Serious: Yes (Death)
  Sender: FDA-Public Use
  Company Number: BR-ASTRAZENECA-2010SE38524

PATIENT
  Age: 81 Year
  Sex: Female
  Weight: 56 kg

DRUGS (1)
  1. SYMBICORT [Suspect]
     Indication: LUNG DISORDER
     Dosage: 320/9 MCG
     Route: 055
     Dates: start: 20090101

REACTIONS (2)
  - OESOPHAGEAL HAEMORRHAGE [None]
  - OFF LABEL USE [None]
